FAERS Safety Report 23991230 (Version 2)
Quarter: 2024Q3

REPORT INFORMATION
  Report Type: Report from Study
  Country: DK (occurrence: DK)
  Receive Date: 20240619
  Receipt Date: 20240729
  Transmission Date: 20241017
  Serious: Yes (Hospitalization)
  Sender: JOHNSON AND JOHNSON
  Company Number: DK-JNJFOC-20240620339

PATIENT
  Age: 55 Year
  Sex: Female

DRUGS (4)
  1. TECLISTAMAB [Suspect]
     Active Substance: TECLISTAMAB
     Indication: Plasma cell myeloma
     Route: 065
     Dates: start: 20220426
  2. TECLISTAMAB [Suspect]
     Active Substance: TECLISTAMAB
     Dosage: STEP-UP DOSE 2
     Route: 065
     Dates: start: 20220428
  3. TECLISTAMAB [Suspect]
     Active Substance: TECLISTAMAB
     Dosage: FIRST MAINTENANCE DOSE
     Route: 065
     Dates: start: 20220502
  4. FILGRASTIM [Concomitant]
     Active Substance: FILGRASTIM
     Indication: Prophylaxis
     Dates: start: 20220607

REACTIONS (2)
  - Arthritis bacterial [Recovered/Resolved]
  - Pyrexia [Recovered/Resolved]

NARRATIVE: CASE EVENT DATE: 20220506
